FAERS Safety Report 16808657 (Version 2)
Quarter: 2019Q3

REPORT INFORMATION
  Report Type: Report from Study
  Country: JP (occurrence: JP)
  Receive Date: 20190916
  Receipt Date: 20190920
  Transmission Date: 20191005
  Serious: Yes (Hospitalization)
  Sender: FDA-Public Use
  Company Number: JP-ROCHE-2410138

PATIENT
  Age: 73 Year
  Sex: Male
  Weight: 70 kg

DRUGS (15)
  1. ESOMEPRAZOLE. [Concomitant]
     Active Substance: ESOMEPRAZOLE MAGNESIUM
     Indication: GASTRITIS PROPHYLAXIS
     Dosage: BEGINNING OF DOSAGE DAY: INVESTIGATIONAL AGENT ADMINISTERING FORMER
     Route: 048
  2. MYSER [DIFLUPREDNATE] [Concomitant]
     Indication: ECZEMA
     Dosage: PROPER QUANTITY AND BEGINNING OF DOSAGE DAY: INVESTIGATIONAL AGENT ADMINISTERING ?FORMER
     Route: 061
  3. BILANOA [Concomitant]
     Active Substance: BILASTINE
     Indication: ECZEMA
     Dosage: BEGINNING OF DOSAGE DAY: INVESTIGATIONAL AGENT ADMINISTERING FORMER
     Route: 048
  4. PIARLE [Concomitant]
     Active Substance: LACTULOSE
     Indication: CONSTIPATION
     Dosage: BEGINNING OF DOSAGE DAY: INVESTIGATIONAL AGENT ADMINISTERING FORMER
     Route: 048
  5. TAPENTA [Concomitant]
     Active Substance: TAPENTADOL HYDROCHLORIDE
     Indication: SMALL CELL LUNG CANCER
     Dosage: BEGINNING OF DOSAGE DAY: INVESTIGATIONAL AGENT ADMINISTERING FORMER
     Route: 048
     Dates: end: 20190904
  6. MAGNESIUM OXIDE. [Concomitant]
     Active Substance: MAGNESIUM OXIDE
     Indication: CONSTIPATION
     Dosage: BEGINNING OF DOSAGE DAY: INVESTIGATIONAL AGENT ADMINISTERING FORMER
     Route: 048
  7. HALIZON [Concomitant]
     Active Substance: AMPHOTERICIN B
     Indication: INFECTION PROPHYLAXIS
     Dosage: BEGINNING OF DOSAGE DAY: INVESTIGATIONAL AGENT ADMINISTERING FORMER
     Route: 050
  8. BETAMETHASONE. [Concomitant]
     Active Substance: BETAMETHASONE
     Indication: SMALL CELL LUNG CANCER
     Dosage: BEGINNING OF DOSAGE DAY: INVESTIGATIONAL AGENT ADMINISTERING FORMER
     Route: 048
  9. ATEZOLIZUMAB. [Suspect]
     Active Substance: ATEZOLIZUMAB
     Indication: NON-SMALL CELL LUNG CANCER
     Route: 041
     Dates: start: 20190823
  10. OXYCODONE [Concomitant]
     Active Substance: OXYCODONE
     Indication: SMALL CELL LUNG CANCER
     Dosage: 10MG PER SINGLE USE AND 1 AND BEGINNING OF DOSAGE DAYS DURING A DAY ONE-TWICE: I?NVESTIGATIONAL AGEN
     Route: 048
     Dates: end: 20190904
  11. SENNOSIDE [SENNOSIDE A+B] [Concomitant]
     Active Substance: SENNOSIDES A AND B
     Indication: CONSTIPATION
     Dosage: SINGLE USE AND BEGINNING OF DOSAGE DAY: INVESTIGATIONAL AGENT ADMINISTERING ?FORMER
     Route: 048
  12. DENOTAS [Concomitant]
     Active Substance: CALCIUM CARBONATE\CHOLECALCIFEROL\MAGNESIUM CARBONATE
     Indication: PROPHYLAXIS
     Dosage: BEGINNING OF DOSAGE DAY: INVESTIGATIONAL AGENT ADMINISTERING FORMER
     Route: 048
  13. RANMARK [Concomitant]
     Active Substance: DENOSUMAB
     Indication: SMALL CELL LUNG CANCER
     Dosage: BEGINNING OF DOSAGE DAY: INVESTIGATIONAL AGENT ADMINISTERING FORMER
     Route: 058
  14. BEVACIZUMAB. [Suspect]
     Active Substance: BEVACIZUMAB
     Indication: NON-SMALL CELL LUNG CANCER
     Route: 041
     Dates: start: 20190823
  15. LYRICA [Concomitant]
     Active Substance: PREGABALIN
     Indication: SMALL CELL LUNG CANCER
     Dosage: BEGINNING OF DOSAGE DAY: INVESTIGATIONAL AGENT ADMINISTERING FORMER
     Route: 048

REACTIONS (1)
  - Ileus [Not Recovered/Not Resolved]

NARRATIVE: CASE EVENT DATE: 20190905
